FAERS Safety Report 23290132 (Version 1)
Quarter: 2023Q4

REPORT INFORMATION
  Report Type: Spontaneous
  Country: AR (occurrence: AR)
  Receive Date: 20231213
  Receipt Date: 20231213
  Transmission Date: 20240109
  Serious: Yes (Hospitalization)
  Sender: FDA-Public Use
  Company Number: AR-GLAXOSMITHKLINE-AR2023AMR172391

PATIENT

DRUGS (1)
  1. BENLYSTA [Suspect]
     Active Substance: BELIMUMAB
     Indication: Systemic lupus erythematosus
     Dosage: 200 MG, WE (200 MG EVERY 7 DAYS)
     Route: 042
     Dates: start: 20230505

REACTIONS (2)
  - Hospitalisation [Recovered/Resolved]
  - Product dose omission issue [Unknown]

NARRATIVE: CASE EVENT DATE: 20231101
